FAERS Safety Report 6238979-8 (Version None)
Quarter: 2009Q2

REPORT INFORMATION
  Report Type: 
  Country: None (occurrence: None)
  Receive Date: 20090622
  Receipt Date: 20090616
  Transmission Date: 20091009
  Serious: Yes (Other)
  Sender: FDA-Public Use
  Company Number: A0786122A

PATIENT
  Age: 44 Year
  Sex: Female

DRUGS (5)
  1. TYKERB [Suspect]
     Dosage: 5TAB PER DAY
     Route: 048
     Dates: start: 20090519
  2. XELODA [Concomitant]
  3. WELLBUTRIN [Concomitant]
  4. CITALOPRAM [Concomitant]
  5. DESYREL [Concomitant]
     Indication: DRUG USE FOR UNKNOWN INDICATION
     Route: 048

REACTIONS (10)
  - ABDOMINAL DISCOMFORT [None]
  - CONTUSION [None]
  - FEELING HOT [None]
  - FLATULENCE [None]
  - LOSS OF CONSCIOUSNESS [None]
  - LYMPH GLAND INFECTION [None]
  - METASTASES TO LYMPH NODES [None]
  - NEUROPATHY PERIPHERAL [None]
  - PAIN IN EXTREMITY [None]
  - WHITE BLOOD CELL COUNT DECREASED [None]
